FAERS Safety Report 22914809 (Version 2)
Quarter: 2024Q1

REPORT INFORMATION
  Report Type: Other
  Country: ES (occurrence: ES)
  Receive Date: 20230907
  Receipt Date: 20240305
  Transmission Date: 20240410
  Serious: Yes (Other)
  Sender: FDA-Public Use
  Company Number: ES-DENTSPLY-2023SCDP000295

PATIENT
  Age: 62 Year
  Sex: Male

DRUGS (7)
  1. MEPIVACAINE [Suspect]
     Active Substance: MEPIVACAINE HYDROCHLORIDE
     Indication: Tendon disorder
     Dosage: UNK DOSE OF MEPIVACAINE (1909A)
     Dates: start: 20230203, end: 20230203
  2. BETAMETHASONE [Suspect]
     Active Substance: BETAMETHASONE\BETAMETHASONE DIPROPIONATE
     Indication: Tendon disorder
     Dosage: 1 DOSAGE FORM TOTAL CELESTONE CRONODOSE SUSPENSION INJECTABLE/SUSPENSION FOR INJECTION, 1 VIAL OF 2
     Dates: start: 20230203, end: 20230203
  3. ETORICOXIB [Concomitant]
     Active Substance: ETORICOXIB
     Indication: Product used for unknown indication
     Dosage: 60 MILLIGRAM, QD ETORICOXIB (2863A)
     Route: 048
  4. EZETIMIBE [Concomitant]
     Active Substance: EZETIMIBE
     Indication: Product used for unknown indication
     Dosage: 10 MILLIGRAM, QD EZETROL 10 MG TABLETS (28 TABLETS)
     Route: 048
  5. ONGLYZA [SAXAGLIPTIN] [Concomitant]
     Indication: Product used for unknown indication
     Dosage: 5 MILLIGRAM, QD ONGLYZA 5 MG FILM-COATED TABLETS (28 TABLETS)
     Route: 048
  6. DAPAGLIFLOZIN [Concomitant]
     Active Substance: DAPAGLIFLOZIN
     Indication: Product used for unknown indication
     Dosage: 10 MILLIGRAM, QD FORXIGA 10 MG FILM-COATED TABLETS (28 TABLETS)
     Route: 048
  7. REPAGLINIDE [Concomitant]
     Active Substance: REPAGLINIDE
     Indication: Product used for unknown indication
     Dosage: 2 MILLIGRAM PER 12 HOURS NOVONORM 2 MG, TABLETS (90 TABLETS)
     Route: 048

REACTIONS (1)
  - Presyncope [Recovered/Resolved]

NARRATIVE: CASE EVENT DATE: 20230203
